FAERS Safety Report 10044384 (Version 1)
Quarter: 2014Q1

REPORT INFORMATION
  Report Type: Spontaneous
  Country: US (occurrence: US)
  Receive Date: 20140328
  Receipt Date: 20140328
  Transmission Date: 20141002
  Serious: Yes (Hospitalization)
  Sender: FDA-Public Use
  Company Number: US-BAYER-2014-044329

PATIENT
  Age: 74 Year
  Sex: Female

DRUGS (2)
  1. ACETYLSALICYLIC ACID (} 100 MG) [Suspect]
     Indication: CORONARY ARTERY DISEASE
  2. CLOPIDOGREL [Interacting]

REACTIONS (2)
  - Oesophageal haemorrhage [Recovered/Resolved]
  - Labelled drug-drug interaction medication error [None]
